FAERS Safety Report 21983398 (Version 2)
Quarter: 2024Q1

REPORT INFORMATION
  Report Type: Spontaneous
  Country: US (occurrence: US)
  Receive Date: 20230213
  Receipt Date: 20240216
  Transmission Date: 20240409
  Serious: No
  Sender: FDA-Public Use
  Company Number: US-OTSUKA-2022_040863

PATIENT
  Age: 3 Month

DRUGS (1)
  1. BUSULFAN [Suspect]
     Active Substance: BUSULFAN
     Indication: Combined immunodeficiency
     Dosage: UNK
     Route: 065

REACTIONS (1)
  - Product use in unapproved indication [Unknown]
